FAERS Safety Report 16817403 (Version 1)
Quarter: 2019Q3

REPORT INFORMATION
  Report Type: Report from Study
  Country: US (occurrence: US)
  Receive Date: 20190917
  Receipt Date: 20190917
  Transmission Date: 20191005
  Serious: No
  Sender: FDA-Public Use
  Company Number: US-BEH-2019106483

PATIENT
  Age: 72 Year
  Sex: Female
  Weight: 52.15 kg

DRUGS (2)
  1. SET, I.V. FLUID TRANSFER/ NEEDLE, HYPODERMIC, SINGLE LUMEN [Suspect]
     Active Substance: .ALPHA.1-PROTEINASE INHIBITOR HUMAN
     Indication: ALPHA-1 ANTI-TRYPSIN DEFICIENCY
     Dosage: 3 VIALS, QW
     Route: 042
     Dates: start: 20170103
  2. SET, I.V. FLUID TRANSFER/ NEEDLE, HYPODERMIC, SINGLE LUMEN [Suspect]
     Active Substance: .ALPHA.1-PROTEINASE INHIBITOR HUMAN
     Dosage: 3 VIALS, TOT
     Route: 042
     Dates: start: 20190829, end: 20190829

REACTIONS (3)
  - Device issue [Unknown]
  - No adverse event [Unknown]
  - Product preparation issue [Unknown]

NARRATIVE: CASE EVENT DATE: 20190829
